FAERS Safety Report 6832621-0 (Version None)
Quarter: 2010Q3

REPORT INFORMATION
  Report Type: 
  Country: None (occurrence: None)
  Receive Date: 20100712
  Receipt Date: 20070316
  Transmission Date: 20110219
  Serious: No
  Sender: FDA-Public Use
  Company Number: US-PFIZER INC-2007021129

PATIENT
  Sex: Male
  Weight: 78.02 kg

DRUGS (6)
  1. CHANTIX [Suspect]
     Indication: SMOKING CESSATION THERAPY
     Dates: start: 20061201
  2. PROZAC [Concomitant]
  3. LODOZ [Concomitant]
  4. DOXYCYCLINE [Concomitant]
  5. PERIOSTAT [Concomitant]
  6. XANAX [Concomitant]
     Indication: INSOMNIA

REACTIONS (1)
  - DRUG INEFFECTIVE [None]
